FAERS Safety Report 20162567 (Version 1)
Quarter: 2021Q4

REPORT INFORMATION
  Report Type: Spontaneous
  Country: CN (occurrence: CN)
  Receive Date: 20211208
  Receipt Date: 20211208
  Transmission Date: 20220303
  Serious: Yes (Hospitalization, Other)
  Sender: FDA-Public Use
  Company Number: CN-ABBVIE-21K-035-4187814-00

PATIENT
  Age: 15 Year
  Sex: Male
  Weight: 80 kg

DRUGS (2)
  1. VALPROATE SODIUM [Suspect]
     Active Substance: VALPROATE SODIUM
     Indication: Seizure
     Route: 048
     Dates: start: 20200906, end: 20200906
  2. LITHIUM CARBONATE [Suspect]
     Active Substance: LITHIUM CARBONATE
     Indication: Schizophrenia
     Route: 048
     Dates: start: 20200906, end: 20200906

REACTIONS (3)
  - Neuroleptic malignant syndrome [Recovering/Resolving]
  - Poisoning [Recovering/Resolving]
  - Intentional overdose [Unknown]
